FAERS Safety Report 7334813-3 (Version None)
Quarter: 2011Q1

REPORT INFORMATION
  Report Type: 
  Country: None (occurrence: None)
  Receive Date: 20110307
  Receipt Date: 20110225
  Transmission Date: 20110831
  Serious: Yes (Other)
  Sender: FDA-Public Use
  Company Number: FR-JNJFOC-20110300243

PATIENT
  Age: 60 Year
  Sex: Female

DRUGS (2)
  1. TAVANIC [Suspect]
     Indication: BRONCHOPNEUMONIA
     Route: 048
  2. PARACETAMOL [Concomitant]
     Indication: BRONCHOPNEUMONIA
     Route: 065

REACTIONS (4)
  - RIB FRACTURE [None]
  - FALL [None]
  - MALAISE [None]
  - LOSS OF CONSCIOUSNESS [None]
